FAERS Safety Report 10385035 (Version 7)
Quarter: 2015Q2

REPORT INFORMATION
  Report Type: Spontaneous
  Country: DE (occurrence: DE)
  Receive Date: 20140814
  Receipt Date: 20150402
  Transmission Date: 20150821
  Serious: Yes (Other)
  Sender: FDA-Public Use
  Company Number: DE-JNJFOC-20140809942

PATIENT
  Age: 78 Year
  Sex: Male
  Weight: 100 kg

DRUGS (5)
  1. SIMPONI [Suspect]
     Active Substance: GOLIMUMAB
     Indication: ANKYLOSING SPONDYLITIS
     Route: 058
     Dates: start: 201310
  2. SIMPONI [Suspect]
     Active Substance: GOLIMUMAB
     Indication: ANKYLOSING SPONDYLITIS
     Route: 058
     Dates: end: 20140430
  3. FALITHROM [Concomitant]
     Active Substance: PHENPROCOUMON
     Dosage: FOLLOWING A PULMONARY EMBOLISM
     Route: 065
     Dates: start: 2010
  4. PRETERAX [Concomitant]
     Active Substance: INDAPAMIDE\PERINDOPRIL
     Route: 065
  5. ARTHOTEC FORTE [Concomitant]
     Indication: ANKYLOSING SPONDYLITIS
     Dosage: 2X1??SINCE YEARS
     Route: 065

REACTIONS (6)
  - Lumbar spinal stenosis [Unknown]
  - Paresis [Not Recovered/Not Resolved]
  - Demyelinating polyneuropathy [Recovered/Resolved with Sequelae]
  - Vitamin D deficiency [Unknown]
  - Micturition disorder [Not Recovered/Not Resolved]
  - Prostatic obstruction [Unknown]

NARRATIVE: CASE EVENT DATE: 201403
